FAERS Safety Report 9108148 (Version 3)
Quarter: 2013Q1

REPORT INFORMATION
  Report Type: Spontaneous
  Country: JP (occurrence: JP)
  Receive Date: 20130221
  Receipt Date: 20130320
  Transmission Date: 20140127
  Serious: Yes (Other)
  Sender: FDA-Public Use
  Company Number: JP-ABBOTT-13P-087-1052167-00

PATIENT
  Age: 66 Year
  Sex: Male

DRUGS (5)
  1. TRICOR [Suspect]
     Indication: DYSLIPIDAEMIA
     Route: 048
     Dates: start: 20130209, end: 20130213
  2. TRICOR [Suspect]
     Indication: HYPERLIPIDAEMIA
  3. TRICOR [Suspect]
     Indication: BLOOD TRIGLYCERIDES INCREASED
  4. METFORMIN HYDROCHLORIDE [Concomitant]
     Indication: TYPE 2 DIABETES MELLITUS
     Route: 048
     Dates: start: 201111
  5. SITAGLIPTIN PHOSPHATE MONOHYDRATE [Concomitant]
     Indication: TYPE 2 DIABETES MELLITUS
     Route: 048
     Dates: start: 201111

REACTIONS (2)
  - Hepatitis acute [Not Recovered/Not Resolved]
  - Bilirubinuria [Not Recovered/Not Resolved]
